FAERS Safety Report 4440103-9 (Version None)
Quarter: 2004Q3

REPORT INFORMATION
  Report Type: 
  Country: None (occurrence: None)
  Receive Date: 20040902
  Receipt Date: 20021014
  Transmission Date: 20050211
  Serious: Yes (Hospitalization, Disabling, Other)
  Sender: FDA-Public Use
  Company Number: US-MERCK-0210USA01493

PATIENT
  Age: 75 Year
  Sex: Female
  Weight: 80 kg

DRUGS (9)
  1. ACETAMINOPHEN [Concomitant]
     Route: 065
  2. ASPIRIN [Concomitant]
     Route: 065
  3. ATENOLOL [Concomitant]
     Route: 065
  4. LIPITOR [Concomitant]
     Route: 065
     Dates: end: 20010501
  5. IRON (UNSPECIFIED) [Concomitant]
     Route: 065
  6. LOPRESSOR [Concomitant]
     Route: 065
     Dates: start: 20000817, end: 20001001
  7. NIASPAN [Concomitant]
     Route: 065
  8. VIOXX [Suspect]
     Indication: ARTHRALGIA
     Route: 048
     Dates: start: 20001117, end: 20010426
  9. ZOLOFT [Concomitant]
     Route: 065

REACTIONS (38)
  - ADVERSE EVENT [None]
  - AGEUSIA [None]
  - ANOREXIA [None]
  - ANOSMIA [None]
  - AORTIC VALVE CALCIFICATION [None]
  - ARTHRALGIA [None]
  - ARTHROPATHY [None]
  - BRONCHITIS [None]
  - CARDIOMEGALY [None]
  - COAGULATION FACTOR VIII LEVEL INCREASED [None]
  - COLON ADENOMA [None]
  - CONDITION AGGRAVATED [None]
  - DEEP VEIN THROMBOSIS [None]
  - DEPRESSION [None]
  - DRUG INEFFECTIVE [None]
  - DYSGEUSIA [None]
  - DYSPNOEA [None]
  - EMOTIONAL DISTRESS [None]
  - FATIGUE [None]
  - HYPERCHOLESTEROLAEMIA [None]
  - HYPERCOAGULATION [None]
  - HYPERTENSION [None]
  - INJURY [None]
  - OSTEOPENIA [None]
  - OSTEOPOROSIS [None]
  - OXYGEN SATURATION DECREASED [None]
  - PAROSMIA [None]
  - PROTEIN S DECREASED [None]
  - PULMONARY EMBOLISM [None]
  - PYREXIA [None]
  - RECTAL HAEMORRHAGE [None]
  - RENAL CYST [None]
  - RENAL DISORDER [None]
  - RHINITIS [None]
  - SKELETAL INJURY [None]
  - THROMBOSIS [None]
  - WEIGHT DECREASED [None]
  - WEIGHT INCREASED [None]
